FAERS Safety Report 23364760 (Version 1)
Quarter: 2024Q1

REPORT INFORMATION
  Report Type: Other
  Country: FR (occurrence: FR)
  Receive Date: 20240104
  Receipt Date: 20240104
  Transmission Date: 20240410
  Serious: Yes (Hospitalization)
  Sender: FDA-Public Use
  Company Number: None

PATIENT

DRUGS (6)
  1. AMLODIPINE [Suspect]
     Active Substance: AMLODIPINE BESYLATE
     Indication: Hypertension
     Dosage: UNK
     Route: 048
     Dates: start: 202212
  2. MODERNA COVID-19 VACCINE [Suspect]
     Active Substance: ELASOMERAN
     Indication: COVID-19 immunisation
     Dosage: 1 DOSAGE FORM 1 TOTAL
     Route: 030
     Dates: start: 20220713, end: 20220713
  3. MODERNA COVID-19 VACCINE [Suspect]
     Active Substance: ELASOMERAN
     Dosage: 1 DOSAGE FORM 1 TOTAL
     Route: 030
     Dates: start: 20210505, end: 20210505
  4. MODERNA COVID-19 VACCINE [Suspect]
     Active Substance: ELASOMERAN
     Dosage: 1 DOSAGE FORM 1 TOTAL
     Route: 030
     Dates: start: 20210407, end: 20210407
  5. INFLUVAC TETRA [Suspect]
     Active Substance: INFLUENZA VIRUS VACCINE QUADRIVALENT TYPE A+B
     Indication: Antiviral prophylaxis
     Dosage: 1 DOSAGE FORM 1 TOTAL
     Route: 030
     Dates: start: 20221123, end: 20221123
  6. COMIRNATY (TOZINAMERAN) [Suspect]
     Active Substance: TOZINAMERAN
     Indication: COVID-19 immunisation
     Dosage: 1 DOSAGE FORM 1 TOTAL
     Route: 030
     Dates: start: 20211109, end: 20211109

REACTIONS (1)
  - Autoimmune encephalopathy [Recovered/Resolved]

NARRATIVE: CASE EVENT DATE: 20230101
